FAERS Safety Report 17664702 (Version 1)
Quarter: 2020Q2

REPORT INFORMATION
  Report Type: Report from Study
  Country: US (occurrence: US)
  Receive Date: 20200414
  Receipt Date: 20200414
  Transmission Date: 20200713
  Serious: Yes (Death, Other)
  Sender: FDA-Public Use
  Company Number: US-MYLANLABS-2020M1036389

PATIENT
  Age: 63 Year
  Sex: Male

DRUGS (1)
  1. DECITABINE. [Suspect]
     Active Substance: DECITABINE
     Indication: NEOPLASM MALIGNANT
     Route: 058

REACTIONS (4)
  - Sepsis [Fatal]
  - Pyrexia [Fatal]
  - Neutropenia [Fatal]
  - Infection [Fatal]
